FAERS Safety Report 11008656 (Version 3)
Quarter: 2015Q2

REPORT INFORMATION
  Report Type: Spontaneous
  Country: US (occurrence: None)
  Receive Date: 20150408
  Receipt Date: 20150528
  Transmission Date: 20150821
  Serious: Yes (Hospitalization, Other)
  Sender: FDA-Public Use
  Company Number: US-H14001-15-00515

PATIENT
  Age: 67 Year
  Sex: Female

DRUGS (1)
  1. INFUMORPH [Suspect]
     Active Substance: MORPHINE SULFATE
     Indication: PAIN
     Dosage: 0.199 ML, PRIMING BOLUS, INTRATHECAL?
     Route: 037

REACTIONS (5)
  - Wound dehiscence [None]
  - Cerebrospinal fluid leakage [None]
  - Incision site erythema [None]
  - Implant site extravasation [None]
  - Headache [None]

NARRATIVE: CASE EVENT DATE: 2015
